FAERS Safety Report 5718952-6 (Version None)
Quarter: 2008Q2

REPORT INFORMATION
  Report Type: 
  Country: None (occurrence: None)
  Receive Date: 20080425
  Receipt Date: 20080415
  Transmission Date: 20081010
  Serious: Yes (Other)
  Sender: FDA-Public Use
  Company Number: US-ABBOTT-08P-163-0447192-00

PATIENT
  Sex: Male

DRUGS (17)
  1. HUMIRA [Suspect]
     Indication: RHEUMATOID ARTHRITIS
     Dosage: WAS IN TEST STUDY-PT CONTINUED AFTER STUDY COMPLETE
     Route: 058
     Dates: end: 20080412
  2. PREDNISONE [Suspect]
     Indication: ARTHRITIS
     Dosage: 5MG AND 2MG  DAILY
     Route: 048
  3. OXYGEN [Concomitant]
     Indication: DYSPNOEA
     Dosage: 2-2L VIA NC AT ALL TIMES
     Route: 045
  4. OXYGEN [Concomitant]
     Indication: EMPHYSEMA
  5. SALMETEROL XINAFOATE [Concomitant]
     Indication: EMPHYSEMA
     Route: 055
  6. SERETIDE [Concomitant]
     Indication: EMPHYSEMA
     Dosage: 500/50-2 PUFFS QD
     Route: 055
  7. SERETIDE [Concomitant]
     Indication: CHRONIC OBSTRUCTIVE PULMONARY DISEASE
  8. LEVOSALBUTAMOL [Concomitant]
     Indication: EMPHYSEMA
     Route: 055
  9. LEVOSALBUTAMOL [Concomitant]
     Indication: CHRONIC OBSTRUCTIVE PULMONARY DISEASE
  10. SULINDAC [Concomitant]
     Indication: DRUG USE FOR UNKNOWN INDICATION
     Route: 055
  11. SIMVASTATIN [Concomitant]
     Indication: DRUG USE FOR UNKNOWN INDICATION
     Route: 048
  12. ALFUZOSIN HCL [Concomitant]
     Indication: DRUG USE FOR UNKNOWN INDICATION
  13. UBIDECARENONE [Concomitant]
     Indication: VITAMIN SUPPLEMENTATION
     Route: 048
  14. ACTONEL [Concomitant]
     Indication: DRUG USE FOR UNKNOWN INDICATION
     Route: 048
  15. ACETYLSALICYLIC ACID SRT [Concomitant]
     Indication: DRUG USE FOR UNKNOWN INDICATION
     Route: 048
  16. CENTRUM SILVER [Concomitant]
     Indication: VITAMIN SUPPLEMENTATION
     Route: 048
  17. NEO-MED SINUS RINSE [Concomitant]
     Indication: DRUG USE FOR UNKNOWN INDICATION
     Dosage: TWICE DAILY
     Route: 045

REACTIONS (14)
  - ARTHRALGIA [None]
  - ARTHRITIS BACTERIAL [None]
  - ATRIAL FIBRILLATION [None]
  - CARDIAC DISORDER [None]
  - FLUID RETENTION [None]
  - HAEMOPHILUS INFECTION [None]
  - MALAISE [None]
  - MUSCULOSKELETAL STIFFNESS [None]
  - MYOCARDIAL INFARCTION [None]
  - OEDEMA PERIPHERAL [None]
  - PAIN IN EXTREMITY [None]
  - PNEUMONIA [None]
  - RENAL FAILURE [None]
  - STAPHYLOCOCCAL INFECTION [None]
